FAERS Safety Report 7878267-7 (Version None)
Quarter: 2011Q4

REPORT INFORMATION
  Report Type: 
  Country: None (occurrence: None)
  Receive Date: 20111101
  Receipt Date: 20111020
  Transmission Date: 20120403
  Serious: Yes (Other)
  Sender: FDA-Public Use
  Company Number: US-JNJFOC-20110900117

PATIENT
  Sex: Female
  Weight: 108.86 kg

DRUGS (12)
  1. REMICADE [Suspect]
     Indication: CROHN'S DISEASE
     Route: 042
     Dates: start: 20110808
  2. REMICADE [Suspect]
     Route: 042
     Dates: start: 20111019
  3. METOPROLOL [Concomitant]
     Indication: BLOOD PRESSURE
     Route: 048
     Dates: start: 20080101
  4. SERTRALINE HYDROCHLORIDE [Concomitant]
     Indication: DEPRESSION
     Route: 048
     Dates: start: 20030101
  5. ANTIHISTAMINES [Concomitant]
     Indication: PREMEDICATION
     Dates: start: 20111001, end: 20111001
  6. CORTICOSTEROIDS [Concomitant]
     Indication: PREMEDICATION
     Dates: start: 20111001, end: 20111001
  7. METHOCARBAMOL [Concomitant]
     Indication: MUSCLE SPASMS
     Route: 048
     Dates: start: 20110101
  8. TRAMADOL HCL [Concomitant]
     Indication: ARTHRALGIA
     Route: 048
     Dates: start: 20080101
  9. PENTASA [Concomitant]
     Indication: CROHN'S DISEASE
     Dosage: 2000MG
     Route: 048
     Dates: start: 20060501
  10. HYOSCYAMINE [Concomitant]
     Indication: GASTROINTESTINAL PAIN
     Route: 060
     Dates: start: 20060101
  11. ZOLPIDEM [Concomitant]
     Indication: SLEEP DISORDER
     Route: 048
     Dates: start: 20070101
  12. ALL OTHER THERAPEUTICS [Concomitant]
     Indication: CONTRACEPTION
     Route: 048

REACTIONS (8)
  - HYPERSENSITIVITY [None]
  - CROHN'S DISEASE [None]
  - DYSPNOEA [None]
  - INFUSION RELATED REACTION [None]
  - HYPOKINESIA [None]
  - VULVOVAGINAL MYCOTIC INFECTION [None]
  - FLUSHING [None]
  - BLOOD TRIGLYCERIDES INCREASED [None]
